FAERS Safety Report 21707481 (Version 2)
Quarter: 2023Q1

REPORT INFORMATION
  Report Type: Spontaneous
  Country: US (occurrence: US)
  Receive Date: 20221209
  Receipt Date: 20230117
  Transmission Date: 20230418
  Serious: No
  Sender: FDA-Public Use
  Company Number: US-TEVA-2022-US-2831152

PATIENT
  Age: 59 Year
  Sex: Female

DRUGS (2)
  1. QVAR REDIHALER [Suspect]
     Active Substance: BECLOMETHASONE DIPROPIONATE
     Indication: Product used for unknown indication
     Dosage: INHALATION  AEROSOL, 80 MCG
     Route: 065
  2. PROAIR HFA [Concomitant]
     Active Substance: ALBUTEROL SULFATE
     Indication: Product used for unknown indication
     Route: 065

REACTIONS (11)
  - Asthma [Unknown]
  - Illness [Unknown]
  - Cough [Unknown]
  - Chest discomfort [Unknown]
  - Device malfunction [Unknown]
  - Device delivery system issue [Unknown]
  - Device defective [Unknown]
  - Product taste abnormal [Unknown]
  - Device breakage [Unknown]
  - Product residue present [Unknown]
  - Device physical property issue [Unknown]

NARRATIVE: CASE EVENT DATE: 20220101
